FAERS Safety Report 9745443 (Version 3)
Quarter: 2014Q1

REPORT INFORMATION
  Report Type: Spontaneous
  Country: US (occurrence: US)
  Receive Date: 20131211
  Receipt Date: 20140204
  Transmission Date: 20141002
  Serious: No
  Sender: FDA-Public Use
  Company Number: US-009507513-1312USA004116

PATIENT
  Age: 55 Year
  Sex: Male

DRUGS (3)
  1. JANUVIA [Suspect]
     Indication: DIABETES MELLITUS
     Dosage: 100 MG/ONCE DAILY IN PM
     Route: 048
     Dates: start: 20131127
  2. JUVISYNC [Suspect]
     Indication: DIABETES MELLITUS
     Route: 048
  3. LIPTRUZET [Concomitant]
     Route: 048

REACTIONS (2)
  - Blood glucose abnormal [Unknown]
  - Drug dose omission [Unknown]
